FAERS Safety Report 6032087-7 (Version None)
Quarter: 2009Q1

REPORT INFORMATION
  Report Type: 
  Country: None (occurrence: None)
  Receive Date: 20090108
  Receipt Date: 19950927
  Transmission Date: 20090719
  Serious: Yes (Other)
  Sender: FDA-Public Use
  Company Number: US-BAXTER-2008BH013920

PATIENT

DRUGS (1)
  1. BALANCED SALT [Suspect]
     Indication: DRUG USE FOR UNKNOWN INDICATION
     Dates: start: 19950907

REACTIONS (2)
  - DEVICE LEAKAGE [None]
  - ENDOPHTHALMITIS [None]
